FAERS Safety Report 7701902-0 (Version None)
Quarter: 2011Q3

REPORT INFORMATION
  Report Type: 
  Country: None (occurrence: None)
  Receive Date: 20110822
  Receipt Date: 20110810
  Transmission Date: 20111222
  Serious: Yes (Death)
  Sender: FDA-Public Use
  Company Number: ZA-SANOFI-AVENTIS-2011SA030985

PATIENT
  Age: 87 Year
  Sex: Male

DRUGS (6)
  1. SPIRACTIN [Concomitant]
     Route: 065
     Dates: start: 20110413, end: 20110503
  2. CLOPIDOGREL WINTHROP [Suspect]
     Route: 048
     Dates: start: 20110411, end: 20110503
  3. ASPIRIN [Concomitant]
     Route: 065
     Dates: end: 20110503
  4. PURESIS [Concomitant]
     Route: 065
     Dates: start: 20110413, end: 20110503
  5. TAMSULOSIN HYDROCHLORIDE [Concomitant]
     Route: 065
     Dates: end: 20110503
  6. ENOXAPARIN SODIUM [Concomitant]

REACTIONS (1)
  - STEVENS-JOHNSON SYNDROME [None]
